FAERS Safety Report 10052933 (Version 1)
Quarter: 2014Q2

REPORT INFORMATION
  Report Type: Spontaneous
  Country: US (occurrence: US)
  Receive Date: 20140402
  Receipt Date: 20140402
  Transmission Date: 20141212
  Serious: No
  Sender: FDA-Public Use
  Company Number: US-009507513-1403USA009904

PATIENT
  Age: 53 Year
  Sex: Female

DRUGS (5)
  1. NOXAFIL [Suspect]
     Indication: PROPHYLAXIS
     Dosage: 200 MG, TID
     Route: 048
     Dates: end: 20140313
  2. TACROLIMUS [Concomitant]
  3. URSODIOL [Concomitant]
  4. MAGNESIUM (UNSPECIFIED) [Concomitant]
  5. VALTREX [Concomitant]

REACTIONS (3)
  - Dysphagia [Unknown]
  - Nasal discomfort [Unknown]
  - Product odour abnormal [Unknown]
